FAERS Safety Report 7041530-6 (Version None)
Quarter: 2010Q4

REPORT INFORMATION
  Report Type: 
  Country: None (occurrence: None)
  Receive Date: 20101013
  Receipt Date: 20100603
  Transmission Date: 20110411
  Serious: No
  Sender: FDA-Public Use
  Company Number: US-ASTRAZENECA-2010SE25781

PATIENT
  Sex: Male
  Weight: 114.8 kg

DRUGS (2)
  1. SYMBICORT [Suspect]
     Indication: CHRONIC OBSTRUCTIVE PULMONARY DISEASE
     Dosage: 160/4.5, 2 PUFFS BID
     Route: 055
     Dates: start: 20100501
  2. COMBIVENT [Concomitant]
     Dosage: SOMETIMES ONLY ONCE A DAY AND SOMETIMES 2-3 TIMES A DAY

REACTIONS (1)
  - DYSPNOEA [None]
